FAERS Safety Report 8578042-4 (Version None)
Quarter: 2012Q3

REPORT INFORMATION
  Report Type: 
  Country: None (occurrence: None)
  Receive Date: 20120808
  Receipt Date: 20120802
  Transmission Date: 20120928
  Serious: Yes (Other)
  Sender: FDA-Public Use
  Company Number: PHHY2012BR067557

PATIENT
  Age: 49 Year
  Sex: Male

DRUGS (1)
  1. DIOVAN HCT [Suspect]
     Indication: HYPERTENSION
     Dosage: 1 DF, DAILY(VALS 320 MG, HYDR 12.5 MG)

REACTIONS (3)
  - INTESTINAL HAEMORRHAGE [None]
  - DISCOMFORT [None]
  - ABDOMINAL PAIN [None]
